FAERS Safety Report 4920599-6 (Version None)
Quarter: 2006Q1

REPORT INFORMATION
  Report Type: 
  Country: None (occurrence: None)
  Receive Date: 20060223
  Receipt Date: 20050302
  Transmission Date: 20060701
  Serious: Yes (Hospitalization, Other)
  Sender: FDA-Public Use
  Company Number: US-MERCK-0503USA00585

PATIENT
  Age: 54 Year
  Sex: Male
  Weight: 111 kg

DRUGS (2)
  1. VIOXX [Suspect]
     Indication: PAIN
     Route: 048
     Dates: start: 20020601, end: 20030301
  2. VIOXX [Suspect]
     Indication: ARTHRITIS
     Route: 048
     Dates: start: 20020601, end: 20030301

REACTIONS (4)
  - ARTERIAL OCCLUSIVE DISEASE [None]
  - CORONARY ARTERY DISEASE [None]
  - INJURY [None]
  - MYOCARDIAL INFARCTION [None]
